FAERS Safety Report 12661931 (Version 2)
Quarter: 2016Q4

REPORT INFORMATION
  Report Type: Spontaneous
  Country: JP (occurrence: JP)
  Receive Date: 20160817
  Receipt Date: 20161223
  Transmission Date: 20170207
  Serious: Yes (Hospitalization)
  Sender: FDA-Public Use
  Company Number: JP-ELI_LILLY_AND_COMPANY-JP201608008455

PATIENT
  Age: 66 Year
  Sex: Male

DRUGS (4)
  1. SAMSCA [Concomitant]
     Active Substance: TOLVAPTAN
     Indication: POLYURIA
     Dosage: 3.75 MG, EACH MORNING
     Route: 048
     Dates: start: 20160510
  2. CYRAMZA [Suspect]
     Active Substance: RAMUCIRUMAB
     Indication: ADENOCARCINOMA GASTRIC
     Dosage: 8 MG/KG, OTHER
     Route: 042
     Dates: start: 20160513, end: 20160722
  3. LASIX [Concomitant]
     Active Substance: FUROSEMIDE
     Indication: POLYURIA
     Dosage: 20 MG, EACH MORNING
     Route: 048
     Dates: start: 20160516
  4. PACLITAXEL. [Suspect]
     Active Substance: PACLITAXEL
     Indication: ADENOCARCINOMA GASTRIC
     Dosage: 80 MG/M2, OTHER
     Route: 042
     Dates: start: 20160610, end: 20160722

REACTIONS (1)
  - Interstitial lung disease [Recovering/Resolving]

NARRATIVE: CASE EVENT DATE: 20160802
